FAERS Safety Report 10015835 (Version 2)
Quarter: 2014Q3

REPORT INFORMATION
  Report Type: Spontaneous
  Country: FR (occurrence: FR)
  Receive Date: 20140317
  Receipt Date: 20140829
  Transmission Date: 20150326
  Serious: Yes (Life-Threatening, Hospitalization)
  Sender: FDA-Public Use
  Company Number: FR-BAYER-2014-034809

PATIENT
  Age: 40 Year
  Sex: Male

DRUGS (27)
  1. CIPROFLOXACIN. [Suspect]
     Active Substance: CIPROFLOXACIN
     Dosage: 400 MG, BID
     Route: 042
     Dates: start: 20140123, end: 20140131
  2. TIORFAN [Concomitant]
     Active Substance: RACECADOTRIL
     Indication: DIARRHOEA
  3. ORACILLINE [Suspect]
     Active Substance: PENICILLIN V
     Dosage: 2 DF, QD
     Route: 048
     Dates: start: 20140131, end: 20140205
  4. ENDOXAN [Concomitant]
     Active Substance: CYCLOPHOSPHAMIDE
     Dosage: UNK
     Dates: start: 20130115
  5. ANTILYMPHOCYTE SERUM [Concomitant]
     Active Substance: THYMOCYTE IMMUNE GLOBULIN NOS
     Dosage: UNK
     Dates: start: 20130115
  6. ACUPAN [Concomitant]
     Active Substance: NEFOPAM HYDROCHLORIDE
     Indication: PAIN
  7. CONTRAMAL [Concomitant]
     Active Substance: TRAMADOL HYDROCHLORIDE
     Indication: PAIN
     Dosage: 50 MG, UNK
  8. AMLODIPINE BESILATE [Concomitant]
     Active Substance: AMLODIPINE BESYLATE
  9. SANDIMMUNE [Suspect]
     Active Substance: CYCLOSPORINE
     Indication: PROPHYLAXIS
     Dosage: UNK
     Route: 042
     Dates: start: 20140206, end: 20140207
  10. URSOLVAN-200 [Concomitant]
     Active Substance: URSODIOL
  11. DIFFU K [Concomitant]
     Active Substance: POTASSIUM CHLORIDE
     Dosage: 2 DF, QD
  12. IMOVANE [Concomitant]
     Active Substance: ZOPICLONE
     Indication: INSOMNIA
  13. WELLVONE [Concomitant]
     Active Substance: ATOVAQUONE
     Dosage: 750 MG, BID
  14. CIFLOX [Suspect]
     Active Substance: CIPROFLOXACIN
     Dosage: 500 MG, BID
     Route: 048
     Dates: start: 20140131, end: 20140203
  15. VALACICLOVIR [Suspect]
     Active Substance: VALACYCLOVIR HYDROCHLORIDE
     Indication: PROPHYLAXIS
     Dosage: 1000 MG, BID
     Route: 048
     Dates: start: 20140107, end: 20140115
  16. INEXIUM [Suspect]
     Active Substance: ESOMEPRAZOLE
     Dosage: 40 MG, QD
     Route: 048
     Dates: start: 20140113, end: 20140204
  17. BUSILVEX [Concomitant]
     Active Substance: BUSULFAN
     Dosage: UNK
     Dates: start: 20130115
  18. NEORAL [Suspect]
     Active Substance: CYCLOSPORINE
     Indication: PROPHYLAXIS
     Dosage: UNK
     Route: 048
     Dates: start: 20140130, end: 20140206
  19. VALACICLOVIR [Suspect]
     Active Substance: VALACYCLOVIR HYDROCHLORIDE
     Indication: PROPHYLAXIS
     Dosage: 1000 MG, BID
     Route: 048
     Dates: start: 20140128, end: 20140203
  20. CALCIDIA [Concomitant]
     Active Substance: CALCIUM POLYCARBOPHIL
     Dosage: 1.54 G, QD
  21. SEROPLEX [Concomitant]
     Active Substance: ESCITALOPRAM OXALATE
     Dosage: 10 MG, QD
  22. SANDIMMUNE [Suspect]
     Active Substance: CYCLOSPORINE
     Indication: PROPHYLAXIS
     Dosage: 250 MG, QD
     Route: 042
     Dates: start: 20140114, end: 20140129
  23. LAROXYL [Suspect]
     Active Substance: AMITRIPTYLINE
     Dosage: 10 DF, QD
     Route: 048
     Dates: start: 20140123, end: 20140204
  24. POSACONAZOLE [Concomitant]
     Active Substance: POSACONAZOLE
  25. CICLOSPORIN [Concomitant]
     Active Substance: CYCLOSPORINE
     Indication: BONE MARROW FAILURE
     Dosage: UNK
     Dates: start: 20130115
  26. METHOTREXATE [Concomitant]
     Active Substance: METHOTREXATE
     Indication: BONE MARROW FAILURE
     Dosage: UNK
     Dates: start: 20130115
  27. SOLUPRED [PREDNISOLONE] [Concomitant]
     Active Substance: PREDNISOLONE
     Dosage: 120 MG, QD

REACTIONS (4)
  - Renal failure acute [Recovered/Resolved]
  - Haemolytic uraemic syndrome [Recovering/Resolving]
  - Nephrocalcinosis [Recovered/Resolved]
  - Renal tubular necrosis [Recovered/Resolved]

NARRATIVE: CASE EVENT DATE: 20140203
